FAERS Safety Report 25415116 (Version 2)
Quarter: 2025Q3

REPORT INFORMATION
  Report Type: Report from Study
  Country: CA (occurrence: CA)
  Receive Date: 20250609
  Receipt Date: 20250723
  Transmission Date: 20251021
  Serious: Yes (Other)
  Sender: ABBVIE
  Company Number: CA-ABBVIE-6316471

PATIENT
  Sex: Female
  Weight: 99 kg

DRUGS (2)
  1. SKYRIZI [Suspect]
     Active Substance: RISANKIZUMAB-RZAA
     Indication: Psoriasis
     Route: 058
     Dates: start: 20200708
  2. SYMBICORT [Concomitant]
     Active Substance: BUDESONIDE\FORMOTEROL FUMARATE DIHYDRATE
     Indication: Product used for unknown indication
     Route: 055

REACTIONS (5)
  - Precancerous condition [Not Recovered/Not Resolved]
  - Intraductal proliferative breast lesion [Unknown]
  - Breast conserving surgery [Unknown]
  - Intestinal tuberculosis [Unknown]
  - Colorectal adenoma [Unknown]

NARRATIVE: CASE EVENT DATE: 20220101
